FAERS Safety Report 5777858-7 (Version None)
Quarter: 2008Q2

REPORT INFORMATION
  Report Type: 
  Country: None (occurrence: None)
  Receive Date: 20080601
  Receipt Date: 20080104
  Transmission Date: 20081010
  Serious: No
  Sender: FDA-Public Use
  Company Number: US200801000918

PATIENT
  Age: 62 Year
  Sex: Male
  Weight: 108.8 kg

DRUGS (9)
  1. BYETTA [Suspect]
     Indication: INSULIN-REQUIRING TYPE 2 DIABETES MELLITUS
     Dosage: 5 UG, 2/D, SUBCUTANEOUS : 10 UG, 2/D, SUBCUTANEOUS
     Route: 058
     Dates: start: 20071024, end: 20071122
  2. BYETTA [Suspect]
     Indication: INSULIN-REQUIRING TYPE 2 DIABETES MELLITUS
     Dosage: 5 UG, 2/D, SUBCUTANEOUS : 10 UG, 2/D, SUBCUTANEOUS
     Route: 058
     Dates: start: 20071123
  3. DRUG USED IN DIABETES [Concomitant]
  4. GLYBURIDE [Concomitant]
  5. INSULIN (INSULIN) [Concomitant]
  6. DIOVAN (HYDROCHLOROTHIAZIDE, VALSARTAN) [Concomitant]
  7. LIPITOR [Concomitant]
  8. COREG [Concomitant]
  9. ASPIRIN [Concomitant]

REACTIONS (1)
  - BLOOD GLUCOSE INCREASED [None]
